FAERS Safety Report 4830507-4 (Version None)
Quarter: 2005Q4

REPORT INFORMATION
  Report Type: 
  Country: None (occurrence: None)
  Receive Date: 20051114
  Receipt Date: 20051028
  Transmission Date: 20060501
  Serious: Yes (Hospitalization)
  Sender: FDA-Public Use
  Company Number: 217061

PATIENT
  Age: 71 Year
  Sex: Female
  Weight: 55.8 kg

DRUGS (6)
  1. BEVACIZUMAB (BEVACIZUMAB) PWDR + SOLVENT, INFUSION SOLN, 100MG [Suspect]
     Indication: OVARIAN CANCER
     Dosage: 840MG, Q3W, INTRAVENOUS
     Route: 042
     Dates: start: 20050505, end: 20050707
  2. ATIVAN [Concomitant]
  3. VICODIN [Concomitant]
  4. VITAMIN C (ASCORBIC ACID) [Concomitant]
  5. MULTIVITAMIN (MULTIVITAMINS NOS) [Concomitant]
  6. CALCIUM (CALCIUM NOS) [Concomitant]

REACTIONS (5)
  - ENTERITIS [None]
  - FISTULA [None]
  - GASTROINTESTINAL PERFORATION [None]
  - PELVIC ABSCESS [None]
  - PLEURAL EFFUSION [None]
